FAERS Safety Report 4395661-X (Version None)
Quarter: 2004Q3

REPORT INFORMATION
  Report Type: 
  Country: None (occurrence: None)
  Receive Date: 20040707
  Receipt Date: 20040624
  Transmission Date: 20050211
  Serious: Yes (Other)
  Sender: FDA-Public Use
  Company Number: JP-JNJFOC-20040607184

PATIENT
  Age: 71 Year
  Sex: Female

DRUGS (2)
  1. REMICADE [Suspect]
     Indication: RHEUMATOID ARTHRITIS
     Dosage: 4 IN
     Dates: start: 20040115
  2. RHEUMATREX [Concomitant]

REACTIONS (2)
  - MONARTHRITIS [None]
  - STAPHYLOCOCCAL BACTERAEMIA [None]
